FAERS Safety Report 9513999 (Version 1)
Quarter: 2013Q1

REPORT INFORMATION
  Report Type: Spontaneous
  Country: US (occurrence: None)
  Receive Date: 20130305
  Receipt Date: 20130305
  Transmission Date: 20140127
  Serious: Yes (Hospitalization)
  Sender: FDA-Public Use
  Company Number: 163-21880-11123881

PATIENT
  Age: 65 Year
  Sex: Male
  Weight: 113.4 kg

DRUGS (11)
  1. REVLIMID [Suspect]
     Indication: PLASMA CELL MYELOMA
     Dosage: 5 MG, DAILY X 21 DAYS, PO
     Route: 048
     Dates: start: 20110129
  2. ACYCLOVIR (ACICLOVIR) (UNKNOWN) [Concomitant]
  3. AMLODIPINE (AMLODIPINE) (UNKNOWN) [Concomitant]
  4. ASPIRIN (ACETYLSALICYLIC ACID) (UNKNOWN) (ACETYLSALICYLIC ACID) [Concomitant]
  5. GABAPENTIN (GABAPENTIN) (UNKNOWN) (GABAPENTIN) [Concomitant]
  6. HYDROCODONE/APAP (VICODIN) (UNKNOWN) [Concomitant]
  7. HYDROXYZINE (HYDROXYZINE) (UNKNOWN) [Concomitant]
  8. MULTIVITAMINS (MULTIVITAMINS) (UNKNOWN) [Concomitant]
  9. OMEPRAZOLE (OMEPRAZOLE) (UNKNOWN) [Concomitant]
  10. NASAL SALINE (SODIUM CHLORIDE) (UNKNOWN) [Concomitant]
  11. ZOFRAN (ONDANSETRON HYDROCHLORIDE) (UNKNOWN) [Concomitant]

REACTIONS (1)
  - Rib fracture [None]
